FAERS Safety Report 12789304 (Version 1)
Quarter: 2016Q3

REPORT INFORMATION
  Report Type: Report from Study
  Country: BR (occurrence: BR)
  Receive Date: 20160928
  Receipt Date: 20160928
  Transmission Date: 20161109
  Serious: Yes (Other)
  Sender: FDA-Public Use
  Company Number: PHHY2016BR132557

PATIENT
  Sex: Female
  Weight: 47 kg

DRUGS (4)
  1. DIOVAN [Suspect]
     Active Substance: VALSARTAN
     Indication: HYPERTENSION
     Dosage: 160 MG, UNK
     Route: 048
  2. DIOVAN HCT [Suspect]
     Active Substance: HYDROCHLOROTHIAZIDE\VALSARTAN
     Indication: HYPERTENSION
     Dosage: 1 DF (HYDROCHLOROTHIAZIDE 12.5 MG, VALSARTAN 320 MG), QD (IN THE MORNING)
     Route: 048
     Dates: start: 2016
  3. AZARGA [Suspect]
     Active Substance: BRINZOLAMIDE\TIMOLOL MALEATE
     Indication: GLAUCOMA
     Dosage: 1 DRP, Q8H (IN EACH EYE)
     Route: 047
     Dates: start: 201602
  4. DIOVAN [Suspect]
     Active Substance: VALSARTAN
     Dosage: 160 MG, BID (AT NIGHT) (SHE STARTED FEELING THAT THE DRUG WAS WEAK)
     Route: 048
     Dates: end: 201601

REACTIONS (11)
  - Glaucoma [Recovering/Resolving]
  - Intraocular pressure increased [Recovering/Resolving]
  - Cough [Unknown]
  - Deafness [Unknown]
  - Hypoacusis [Recovered/Resolved]
  - Influenza [Unknown]
  - Nervousness [Recovering/Resolving]
  - Headache [Unknown]
  - Blood pressure increased [Unknown]
  - Drug ineffective [Unknown]
  - Visual acuity reduced [Unknown]
